FAERS Safety Report 24395689 (Version 2)
Quarter: 2025Q1

REPORT INFORMATION
  Report Type: Spontaneous
  Country: JP (occurrence: JP)
  Receive Date: 20241004
  Receipt Date: 20250127
  Transmission Date: 20250409
  Serious: Yes (Other)
  Sender: ROCHE
  Company Number: JP-CHUGAI-2024033987

PATIENT
  Age: 51 Year
  Sex: Female
  Weight: 50 kg

DRUGS (11)
  1. ENSPRYNG [Suspect]
     Active Substance: SATRALIZUMAB-MWGE
     Indication: Neuromyelitis optica spectrum disorder
     Dosage: 120 MILLIGRAM, ONCE/4WEEKS
     Route: 050
     Dates: start: 20230228
  2. VONOPRAZAN FUMARATE [Concomitant]
     Active Substance: VONOPRAZAN FUMARATE
     Route: 050
     Dates: start: 20220818
  3. DULOXETINE HYDROCHLORIDE [Concomitant]
     Active Substance: DULOXETINE HYDROCHLORIDE
     Route: 050
     Dates: start: 20221019
  4. PREDNISOLONE [Concomitant]
     Active Substance: PREDNISOLONE
     Route: 065
     Dates: start: 20220821
  5. MOSAPRIDE CITRATE [Concomitant]
     Active Substance: MOSAPRIDE CITRATE
     Route: 065
     Dates: start: 20230822
  6. PREGABALIN [Concomitant]
     Active Substance: PREGABALIN
     Route: 050
     Dates: start: 20220829
  7. AMITIZA [Concomitant]
     Active Substance: LUBIPROSTONE
     Route: 050
     Dates: start: 20230627
  8. VITAMEDIN [BENFOTIAMINE;CYANOCOBALAMIN;PYRIDOXINE HYDROCHLORIDE] [Concomitant]
     Route: 050
     Dates: start: 20220822
  9. ROSUVASTATIN CALCIUM [Concomitant]
     Active Substance: ROSUVASTATIN CALCIUM
     Route: 050
     Dates: start: 20230228
  10. DAYVIGO [Concomitant]
     Active Substance: LEMBOREXANT
     Route: 050
     Dates: start: 20240827
  11. MAGNESIUM OXIDE [Concomitant]
     Active Substance: MAGNESIUM OXIDE
     Route: 050

REACTIONS (1)
  - Urinary tract infection [Recovered/Resolved]

NARRATIVE: CASE EVENT DATE: 20240924
